FAERS Safety Report 14534240 (Version 1)
Quarter: 2018Q1

REPORT INFORMATION
  Report Type: Spontaneous
  Country: US (occurrence: US)
  Receive Date: 20180214
  Receipt Date: 20180214
  Transmission Date: 20180509
  Serious: No
  Sender: FDA-Public Use
  Company Number: None

PATIENT
  Sex: Male
  Weight: 82.55 kg

DRUGS (1)
  1. EPCLUSA [Suspect]
     Active Substance: SOFOSBUVIR\VELPATASVIR
     Indication: HEPATITIS B
     Dosage: 1 TAB DAILY PO
     Route: 048
     Dates: start: 201801

REACTIONS (4)
  - Oedema peripheral [None]
  - Pruritus [None]
  - Weight increased [None]
  - Face oedema [None]
